FAERS Safety Report 16466279 (Version 1)
Quarter: 2019Q2

REPORT INFORMATION
  Report Type: Spontaneous
  Country: CN (occurrence: CN)
  Receive Date: 20190622
  Receipt Date: 20190622
  Transmission Date: 20190711
  Serious: Yes (Hospitalization, Other)
  Sender: FDA-Public Use
  Company Number: CN-ROCHE-2337837

PATIENT
  Age: 73 Year
  Sex: Female
  Weight: 45 kg

DRUGS (2)
  1. XELODA [Suspect]
     Active Substance: CAPECITABINE
     Indication: RECTAL CANCER
     Dosage: 0.15 G AT FORENOON, 0.5 G AT EVENING
     Route: 048
     Dates: start: 20190520, end: 20190531
  2. XELODA [Suspect]
     Active Substance: CAPECITABINE
     Indication: METASTASES TO LUNG

REACTIONS (14)
  - Renal failure [Unknown]
  - Diabetic nephropathy [Unknown]
  - Cerebral atrophy [Unknown]
  - Type 2 diabetes mellitus [Unknown]
  - Cerebral infarction [Unknown]
  - Cerebral arteriosclerosis [Unknown]
  - Hypertension [Unknown]
  - Confusional state [Unknown]
  - Shock [Unknown]
  - Metabolic acidosis [Unknown]
  - Syncope [Recovered/Resolved]
  - Nausea [Unknown]
  - Decreased appetite [Unknown]
  - Vomiting [Unknown]

NARRATIVE: CASE EVENT DATE: 20190526
